FAERS Safety Report 6522994-0 (Version None)
Quarter: 2009Q4

REPORT INFORMATION
  Report Type: 
  Country: None (occurrence: None)
  Receive Date: 20091222
  Receipt Date: 20091215
  Transmission Date: 20100525
  Serious: Yes (Death)
  Sender: FDA-Public Use
  Company Number: 2009US004371

PATIENT
  Sex: Female

DRUGS (3)
  1. PROGRAF [Suspect]
     Indication: RENAL TRANSPLANT
     Dosage: 8 MG, UID/QD, ORAL
     Route: 048
  2. CYCLOSPORINE [Concomitant]
  3. MYCOPHENOLATE MOFETIL [Concomitant]

REACTIONS (1)
  - DEATH [None]
